FAERS Safety Report 7080849-X (Version None)
Quarter: 2010Q4

REPORT INFORMATION
  Report Type: 
  Country: None (occurrence: None)
  Receive Date: 20101103
  Receipt Date: 20101025
  Transmission Date: 20110411
  Serious: Yes (Other)
  Sender: FDA-Public Use
  Company Number: NL-PFIZER INC-2010118297

PATIENT
  Age: 75 Year
  Sex: Female

DRUGS (2)
  1. LIPITOR [Suspect]
     Dosage: 20 MG, UNK
     Dates: start: 19990101
  2. ACETYLSALICYLIC ACID [Suspect]
     Dosage: UNK

REACTIONS (7)
  - CHEST PAIN [None]
  - FATIGUE [None]
  - HEADACHE [None]
  - INSOMNIA [None]
  - MYALGIA [None]
  - PALPITATIONS [None]
  - RESTLESSNESS [None]
